FAERS Safety Report 7308763-2 (Version None)
Quarter: 2011Q1

REPORT INFORMATION
  Report Type: 
  Country: None (occurrence: None)
  Receive Date: 20110223
  Receipt Date: 20110214
  Transmission Date: 20110831
  Serious: Yes (Hospitalization)
  Sender: FDA-Public Use
  Company Number: PHHO2009DE09404

PATIENT
  Sex: Male
  Weight: 70 kg

DRUGS (13)
  1. EVEROLIMUS [Suspect]
     Dosage: 0.25 MG, BID
     Route: 048
     Dates: start: 20110121, end: 20110125
  2. PANTOPRAZOLE [Concomitant]
  3. DILTIAZEM [Concomitant]
  4. MYFORTIC [Concomitant]
  5. TORSEMIDE [Concomitant]
  6. CICLOSPORIN [Suspect]
     Indication: HEART TRANSPLANT
     Dosage: 100 MG
     Dates: start: 20090524
  7. ENALAPRIL MALEATE [Concomitant]
  8. EVEROLIMUS [Suspect]
     Indication: HEART TRANSPLANT
     Dosage: 0.75 MG, BID
     Route: 048
     Dates: start: 20090523, end: 20090810
  9. KALINOR [Concomitant]
  10. LEVOTHYROXINE SODIUM [Concomitant]
  11. SIMVASTATIN [Suspect]
     Indication: BLOOD CHOLESTEROL
     Dosage: UNK
     Dates: start: 20090612, end: 20110127
  12. COTRIM [Concomitant]
  13. EVEROLIMUS [Suspect]
     Dosage: 0.25 MG, BID
     Route: 048
     Dates: start: 20110211

REACTIONS (4)
  - BLOOD CREATININE INCREASED [None]
  - BLOOD CREATINE PHOSPHOKINASE MB INCREASED [None]
  - MEDICATION ERROR [None]
  - BLOOD CREATINE PHOSPHOKINASE INCREASED [None]
